FAERS Safety Report 14780167 (Version 2)
Quarter: 2018Q2

REPORT INFORMATION
  Report Type: Report from Study
  Country: US (occurrence: US)
  Receive Date: 20180419
  Receipt Date: 20180607
  Transmission Date: 20180711
  Serious: Yes (Hospitalization, Other)
  Sender: FDA-Public Use
  Company Number: US-TAKEDA-2018TUS010206

PATIENT
  Sex: Female

DRUGS (1)
  1. PONATINIB [Suspect]
     Active Substance: PONATINIB
     Indication: CHRONIC MYELOID LEUKAEMIA
     Dosage: 30 MG, QD
     Route: 048
     Dates: start: 20180215

REACTIONS (25)
  - Subdural haematoma [Unknown]
  - White blood cell disorder [Unknown]
  - Contusion [Unknown]
  - Hypertension [Unknown]
  - Fatigue [Unknown]
  - Pleural effusion [Unknown]
  - Non-Hodgkin^s lymphoma [Unknown]
  - Oral candidiasis [Unknown]
  - Staphylococcal infection [Unknown]
  - Encephalopathy [Unknown]
  - Otitis externa [Unknown]
  - Escherichia urinary tract infection [Unknown]
  - Thrombocytopenia [Unknown]
  - Epistaxis [Unknown]
  - Anxiety [Unknown]
  - Depression [Unknown]
  - Pain [Unknown]
  - Red cell distribution width abnormal [Unknown]
  - Neuropathy peripheral [Unknown]
  - Asthenia [Unknown]
  - Pneumonia [Unknown]
  - Haemoglobin abnormal [Unknown]
  - Chronic myeloid leukaemia recurrent [Unknown]
  - Fall [Unknown]
  - Hypogammaglobulinaemia [Unknown]
